FAERS Safety Report 18367434 (Version 3)
Quarter: 2021Q1

REPORT INFORMATION
  Report Type: Report from Study
  Country: BR (occurrence: BR)
  Receive Date: 20201009
  Receipt Date: 20210311
  Transmission Date: 20210419
  Serious: Yes (Other)
  Sender: FDA-Public Use
  Company Number: NVSC2020BR069468

PATIENT
  Age: 56 Year
  Sex: Female

DRUGS (11)
  1. KISQALI [Suspect]
     Active Substance: RIBOCICLIB
     Indication: BREAST CANCER
     Dosage: UNK (START DATE REPORTED AS EVERY 21 DAYS WITH 1 WEEK REST)
     Route: 065
     Dates: end: 20200130
  2. XGEVA [Concomitant]
     Active Substance: DENOSUMAB
     Indication: BONE DISORDER
     Dosage: UNK (STARTED BEFORE BFORE KISQALI)
     Route: 065
  3. KISQALI [Suspect]
     Active Substance: RIBOCICLIB
     Dosage: 3 DF, QD (DAILY)
     Route: 065
     Dates: start: 202001
  4. KISQALI [Suspect]
     Active Substance: RIBOCICLIB
     Dosage: 3 DF, QD
     Route: 065
  5. KISQALI [Suspect]
     Active Substance: RIBOCICLIB
     Dosage: UNK (USED FOR 21 DAYS AND PAUSED FOR 7 DAYS)
     Route: 065
     Dates: start: 20200130
  6. FULVESTRANT. [Suspect]
     Active Substance: FULVESTRANT
     Indication: PRODUCT USED FOR UNKNOWN INDICATION
     Dosage: UNK (2 AMPOULES)
     Route: 065
  7. FASLODEX [Suspect]
     Active Substance: FULVESTRANT
     Dosage: UNK UNK, QMO (EVERY 28 DAYS 2 INJECTION, 2 AMPOULES)
     Route: 065
  8. FASLODEX [Suspect]
     Active Substance: FULVESTRANT
     Indication: HORMONE THERAPY
     Dosage: UNK (SINCE BEFORE KISQALI)
     Route: 065
  9. KISQALI [Suspect]
     Active Substance: RIBOCICLIB
     Dosage: UNK UNK, TID
     Route: 065
     Dates: start: 20200130
  10. KISQALI [Suspect]
     Active Substance: RIBOCICLIB
     Dosage: 3 DF, QD
     Route: 048
     Dates: start: 20200130
  11. DENOSUMAB [Concomitant]
     Active Substance: DENOSUMAB
     Indication: BONE DISORDER
     Dosage: UNK (SINCE BEFORE KISQALI)
     Route: 065

REACTIONS (25)
  - Decreased immune responsiveness [Recovered/Resolved]
  - Alopecia [Recovered/Resolved]
  - Nausea [Recovered/Resolved]
  - Decreased immune responsiveness [Recovered/Resolved]
  - Osteopenia [Unknown]
  - Asthenia [Unknown]
  - COVID-19 [Recovered/Resolved]
  - Anxiety [Unknown]
  - Decreased immune responsiveness [Recovered/Resolved]
  - Weight decreased [Recovered/Resolved]
  - Nervousness [Recovering/Resolving]
  - Taste disorder [Unknown]
  - Anosmia [Not Recovered/Not Resolved]
  - Alopecia [Recovered/Resolved]
  - Lung disorder [Unknown]
  - Palpitations [Unknown]
  - Neutrophil count decreased [Recovered/Resolved]
  - Fatigue [Not Recovered/Not Resolved]
  - Lymphadenopathy [Recovering/Resolving]
  - Malaise [Recovered/Resolved]
  - Neutrophil count decreased [Recovering/Resolving]
  - Vomiting [Recovered/Resolved]
  - Diarrhoea [Recovered/Resolved]
  - Stress [Unknown]
  - Musculoskeletal pain [Unknown]

NARRATIVE: CASE EVENT DATE: 202001
